FAERS Safety Report 4374946-7 (Version None)
Quarter: 2004Q2

REPORT INFORMATION
  Report Type: 
  Country: None (occurrence: None)
  Receive Date: 20040604
  Receipt Date: 20040527
  Transmission Date: 20050107
  Serious: Yes (Life-Threatening)
  Sender: FDA-Public Use
  Company Number: 2004SE03036

PATIENT
  Age: 69 Year
  Sex: Male

DRUGS (5)
  1. NAROPIN [Suspect]
     Indication: ANAESTHESIA
     Dosage: 225 MG ONCE PNEU
     Dates: start: 20040325, end: 20040325
  2. INDERAL [Concomitant]
  3. ZYLORIC ^GLAXO WELLCOME^ [Concomitant]
  4. IMDUR [Concomitant]
  5. TROMBYL [Concomitant]

REACTIONS (5)
  - ANAESTHETIC COMPLICATION NEUROLOGICAL [None]
  - CONVULSION [None]
  - DEPRESSED LEVEL OF CONSCIOUSNESS [None]
  - ELECTROCARDIOGRAM ST SEGMENT ELEVATION [None]
  - MUSCLE SPASMS [None]
